FAERS Safety Report 4533190-0 (Version None)
Quarter: 2004Q4

REPORT INFORMATION
  Report Type: 
  Country: None (occurrence: None)
  Receive Date: 20041107
  Receipt Date: 20040427
  Transmission Date: 20050328
  Serious: Yes (Other)
  Sender: FDA-Public Use
  Company Number: 700325

PATIENT
  Age: 15 Year
  Sex: Male
  Weight: 53 kg

DRUGS (5)
  1. DIANEAL [Suspect]
     Indication: PERITONEAL DIALYSIS
     Dosage: INTRAPERITONEAL
     Route: 033
     Dates: start: 20031201
  2. CALCITRIOL [Concomitant]
  3. EPOGEN [Concomitant]
  4. CALCIUM CARBONATE [Concomitant]
  5. SODIUM BICARBONATE [Concomitant]

REACTIONS (1)
  - PRURITUS [None]
